FAERS Safety Report 6359108-6 (Version None)
Quarter: 2009Q3

REPORT INFORMATION
  Report Type: 
  Country: None (occurrence: None)
  Receive Date: 20090917
  Receipt Date: 20090908
  Transmission Date: 20100115
  Serious: Yes (Hospitalization)
  Sender: FDA-Public Use
  Company Number: US-CELGENEUS-163-21880-09010223

PATIENT
  Sex: Female

DRUGS (3)
  1. REVLIMID [Suspect]
     Indication: MULTIPLE MYELOMA
     Dates: start: 20080825, end: 20081001
  2. REVLIMID [Suspect]
     Dates: start: 20081013, end: 20081101
  3. REVLIMID [Suspect]
     Dates: start: 20081112

REACTIONS (3)
  - BACK PAIN [None]
  - DYSPHAGIA [None]
  - OROPHARYNGEAL PAIN [None]
